FAERS Safety Report 6463892-0 (Version None)
Quarter: 2009Q4

REPORT INFORMATION
  Report Type: 
  Country: None (occurrence: None)
  Receive Date: 20091201
  Receipt Date: 20091123
  Transmission Date: 20100525
  Serious: Yes (Other)
  Sender: FDA-Public Use
  Company Number: IT-ROCHE-670551

PATIENT
  Age: 53 Year
  Sex: Female

DRUGS (7)
  1. MYCOPHENOLATE MOFETIL [Suspect]
     Route: 065
  2. TACROLIMUS [Suspect]
     Route: 065
  3. TACROLIMUS [Suspect]
     Dosage: DOSE REDUCED.
     Route: 065
  4. PREDNISONE TAB [Suspect]
     Route: 065
  5. PREDNISONE TAB [Suspect]
     Dosage: DOSE TAPERING.
     Route: 065
  6. BASILIXIMAB [Suspect]
     Dosage: AS INDUCTION THERAPY
     Route: 065
  7. CIDOFOVIR [Suspect]
     Dosage: DOSE: 0.5-1MG/KG BODY WEIGHT FOR A TOTAL OF 5 ADMINISTRATIONS
     Route: 065

REACTIONS (3)
  - ACIDOSIS HYPERCHLORAEMIC [None]
  - JC VIRUS INFECTION [None]
  - RENAL FAILURE CHRONIC [None]
